FAERS Safety Report 8077395-3 (Version None)
Quarter: 2012Q1

REPORT INFORMATION
  Report Type: 
  Country: None (occurrence: None)
  Receive Date: 20120127
  Receipt Date: 20120117
  Transmission Date: 20120608
  Serious: Yes (Other)
  Sender: FDA-Public Use
  Company Number: UG-ABBOTT-12P-165-0894058-00

PATIENT
  Age: 36 Year
  Sex: Female

DRUGS (4)
  1. LOPINAVIR/RITONAVIR [Suspect]
     Indication: HIV INFECTION
     Route: 048
     Dates: start: 20110322
  2. SEPTRA [Concomitant]
     Indication: HIV INFECTION
     Route: 048
     Dates: start: 20051126
  3. TENOFOVIR DISOPROSIL FUMARATE (VIREAD) [Concomitant]
     Indication: HIV INFECTION
     Route: 048
     Dates: start: 20110322
  4. LAMIVUDINE [Concomitant]
     Indication: HIV INFECTION
     Route: 048
     Dates: start: 20110322

REACTIONS (1)
  - BLOOD ALKALINE PHOSPHATASE INCREASED [None]
